FAERS Safety Report 20995456 (Version 4)
Quarter: 2022Q4

REPORT INFORMATION
  Report Type: Report from Study
  Country: CO (occurrence: CO)
  Receive Date: 20220622
  Receipt Date: 20221104
  Transmission Date: 20230113
  Serious: Yes (Other)
  Sender: FDA-Public Use
  Company Number: CO-AMGEN-COLSL2022095221

PATIENT
  Age: 58 Year
  Sex: Female
  Weight: 52 kg

DRUGS (8)
  1. EVENITY [Suspect]
     Active Substance: ROMOSOZUMAB-AQQG
     Indication: Osteoporosis postmenopausal
     Dosage: 210 MILLIGRAM, QMO (MONTHLY)
     Route: 058
     Dates: start: 20220427
  2. EVENITY [Suspect]
     Active Substance: ROMOSOZUMAB-AQQG
  3. DENOSUMAB [Suspect]
     Active Substance: DENOSUMAB
     Indication: Product used for unknown indication
     Dosage: UNK
     Route: 065
  4. VITAMIN D [Concomitant]
     Active Substance: VITAMIN D NOS
     Indication: Osteoporosis postmenopausal
     Dosage: 200 INTERNATIONAL UNIT, QD
     Route: 065
  5. VITAMIN D3 [Concomitant]
     Active Substance: CHOLECALCIFEROL
     Indication: Osteoporosis postmenopausal
     Dosage: 25000UI/ML, (1 AMPOULE EVERY 8 DAYS)
     Route: 048
  6. LANSOPRAZOLE [Concomitant]
     Active Substance: LANSOPRAZOLE
     Indication: Gastritis
     Dosage: 1 DOSAGE FORM, QD
     Route: 065
  7. ROSUVASTATIN CALCIUM [Concomitant]
     Active Substance: ROSUVASTATIN CALCIUM
     Indication: Hypercholesterolaemia
     Dosage: 1 DOSAGE FORM, QD
     Route: 065
     Dates: start: 20220108
  8. PREGABALIN [Concomitant]
     Active Substance: PREGABALIN
     Indication: Hereditary motor and sensory neuropathy
     Dosage: 75 MILLIGRAM, AS NEEDED, WHEN SHE SUFFERS FROM MUSCLE PAIN
     Route: 065

REACTIONS (11)
  - Urinary tract infection [Recovered/Resolved]
  - Tooth loss [Not Recovered/Not Resolved]
  - Blood cholesterol abnormal [Not Recovered/Not Resolved]
  - Vitamin D decreased [Not Recovered/Not Resolved]
  - Application site swelling [Not Recovered/Not Resolved]
  - Migraine [Not Recovered/Not Resolved]
  - Tachycardia [Not Recovered/Not Resolved]
  - Pruritus [Not Recovered/Not Resolved]
  - Bruxism [Not Recovered/Not Resolved]
  - Facial pain [Not Recovered/Not Resolved]
  - Dental care [Not Recovered/Not Resolved]

NARRATIVE: CASE EVENT DATE: 20220101
